FAERS Safety Report 8173194-2 (Version None)
Quarter: 2012Q1

REPORT INFORMATION
  Report Type: 
  Country: None (occurrence: None)
  Receive Date: 20120229
  Receipt Date: 20110715
  Transmission Date: 20120608
  Serious: No
  Sender: FDA-Public Use
  Company Number: US-GLAXOSMITHKLINE-A0936957A

PATIENT
  Age: 54 Year
  Sex: Female

DRUGS (7)
  1. LEVOTHYROXINE SODIUM [Concomitant]
  2. SULFAMETHAZINE [Concomitant]
  3. PROZAC [Concomitant]
  4. CALCIUM [Concomitant]
  5. SUMATRIPTAN SUCCINATE [Suspect]
     Indication: MIGRAINE
     Dosage: 6MG AS REQUIRED
     Route: 058
  6. ASCORBIC ACID [Concomitant]
  7. ONE A DAY [Concomitant]

REACTIONS (5)
  - HYPERSENSITIVITY [None]
  - FEELING HOT [None]
  - PRODUCT QUALITY ISSUE [None]
  - SENSORY DISTURBANCE [None]
  - DRUG INEFFECTIVE [None]
